FAERS Safety Report 15868478 (Version 1)
Quarter: 2019Q1

REPORT INFORMATION
  Report Type: Spontaneous
  Country: US (occurrence: US)
  Receive Date: 20190125
  Receipt Date: 20190125
  Transmission Date: 20190417
  Serious: Yes (Hospitalization)
  Sender: FDA-Public Use
  Company Number: None

PATIENT
  Age: 39 Year
  Sex: Female
  Weight: 95.4 kg

DRUGS (1)
  1. VIBERZI [Suspect]
     Active Substance: ELUXADOLINE
     Indication: DIARRHOEA
     Route: 048
     Dates: start: 20190124, end: 20190124

REACTIONS (5)
  - Nausea [None]
  - Abdominal pain [None]
  - Palpitations [None]
  - Contraindicated product administered [None]
  - Hyperhidrosis [None]

NARRATIVE: CASE EVENT DATE: 20190124
